FAERS Safety Report 17011693 (Version 1)
Quarter: 2019Q4

REPORT INFORMATION
  Report Type: Spontaneous
  Country: DE (occurrence: DE)
  Receive Date: 20191108
  Receipt Date: 20191108
  Transmission Date: 20200122
  Serious: Yes (Other)
  Sender: FDA-Public Use
  Company Number: DE-ANIPHARMA-2019-DE-000153

PATIENT
  Sex: Female

DRUGS (13)
  1. FULVESTRANT. [Suspect]
     Active Substance: FULVESTRANT
     Dosage: UNK
     Route: 030
     Dates: start: 201310, end: 201805
  2. TAMOXIFEN [Suspect]
     Active Substance: TAMOXIFEN
     Dosage: UNK
     Route: 048
     Dates: start: 201903
  3. GEMCITABINE. [Suspect]
     Active Substance: GEMCITABINE
     Dosage: UNK
     Route: 065
     Dates: start: 201812, end: 201902
  4. ANASTROZOLE. [Suspect]
     Active Substance: ANASTROZOLE
     Indication: BREAST CANCER METASTATIC
     Dosage: UNK
     Route: 048
     Dates: start: 201509, end: 201612
  5. EPIRUBICIN [Suspect]
     Active Substance: EPIRUBICIN
     Dosage: UNK
     Route: 065
     Dates: start: 201807, end: 201809
  6. PACLITAXEL. [Suspect]
     Active Substance: PACLITAXEL
     Dosage: UNK
     Route: 065
     Dates: start: 201504, end: 201509
  7. CYCLOPHOSPHAMIDE. [Suspect]
     Active Substance: CYCLOPHOSPHAMIDE
     Dosage: UNK
     Route: 065
     Dates: start: 201807, end: 201809
  8. VINORELBINE [Suspect]
     Active Substance: VINORELBINE TARTRATE
     Dosage: UNK
     Route: 065
     Dates: start: 201402, end: 201406
  9. EXEMESTANE. [Suspect]
     Active Substance: EXEMESTANE
     Dosage: UNK
     Route: 065
     Dates: start: 201410, end: 201504
  10. CARBOPLATIN. [Suspect]
     Active Substance: CARBOPLATIN
     Dosage: UNK
     Route: 065
     Dates: start: 201812, end: 201902
  11. LETROZOLE. [Suspect]
     Active Substance: LETROZOLE
     Dosage: UNK
     Route: 065
     Dates: start: 201107, end: 201310
  12. EVEROLIMUS. [Suspect]
     Active Substance: EVEROLIMUS
     Dosage: UNK
     Route: 065
     Dates: start: 201410, end: 201504
  13. CAPECITABINE. [Suspect]
     Active Substance: CAPECITABINE
     Dosage: UNK
     Route: 065
     Dates: start: 201402, end: 201410

REACTIONS (6)
  - Breast cancer metastatic [Unknown]
  - Malignant neoplasm progression [Unknown]
  - Pleural effusion [Unknown]
  - Metastases to liver [Unknown]
  - Dyspnoea [Unknown]
  - Polyneuropathy [Unknown]
